FAERS Safety Report 9166423 (Version 3)
Quarter: 2013Q2

REPORT INFORMATION
  Report Type: Spontaneous
  Country: US (occurrence: US)
  Receive Date: 20130313
  Receipt Date: 20130530
  Transmission Date: 20140414
  Serious: Yes (Hospitalization)
  Sender: FDA-Public Use
  Company Number: US-MERCK-1303USA003232

PATIENT
  Sex: Male

DRUGS (13)
  1. SINGULAIR [Suspect]
     Dosage: 10 MG, ONCE DAILY AT NIGHT
     Route: 048
  2. PRILOSEC [Concomitant]
     Dosage: 20 MG, TWICE DAILY
     Route: 048
  3. QVAR [Suspect]
     Dosage: UNK
     Dates: end: 20130206
  4. VALIUM [Concomitant]
     Dosage: 5 MG, THREE TIMES DAILY AS NEEDED
  5. DUONEB [Concomitant]
     Dosage: 3 MG, 4 TIMES DAILY
  6. SPIRIVA [Concomitant]
     Dosage: 18 MICROGRAM, TAKEN ONCE DAILY IN THE MORNING
  7. FLONASE [Concomitant]
     Dosage: 1 SPRAY IN EACH NOSTRIL TWICE DAILY
  8. FLORAJEN ACIDOPHILUS [Concomitant]
     Indication: PROPHYLAXIS
     Dosage: 1 CAPSULE 2 TIMES DAILY
  9. SEROQUEL XR [Suspect]
     Dosage: 50 MG TAKEN ONCE DAILY
  10. PREDNISONE [Concomitant]
     Dosage: 40 MG
  11. PREDNISONE [Concomitant]
     Dosage: 5 MG ONCE DAILY
  12. MUCINEX [Concomitant]
     Dosage: 600 MG, ONCE DAILY
  13. DULERA [Suspect]
     Indication: ASTHMA
     Dosage: 2 PUFFS TWICE A DAY
     Route: 055
     Dates: start: 20130224

REACTIONS (3)
  - Asthma [Unknown]
  - Chest pain [Unknown]
  - Heart rate increased [Unknown]
